FAERS Safety Report 9577615 (Version 1)
Quarter: 2013Q4

REPORT INFORMATION
  Report Type: Spontaneous
  Country: US (occurrence: US)
  Receive Date: 20131001
  Receipt Date: 20131001
  Transmission Date: 20140711
  Serious: No
  Sender: FDA-Public Use
  Company Number: US-AMGEN-USASP2013008084

PATIENT
  Age: 65 Year
  Sex: Male
  Weight: 71.66 kg

DRUGS (5)
  1. ENBREL [Suspect]
     Indication: RHEUMATOID ARTHRITIS
     Dosage: 50 MG, EVERY 7 DAYS
     Route: 058
  2. AMLODIPINE [Concomitant]
     Dosage: 5 MG, UNK
  3. LISINOPRIL [Concomitant]
     Dosage: 10 MG, UNK
  4. VITAMIN D                          /00107901/ [Concomitant]
     Dosage: 400 UNIT, UNK
  5. ALEVE [Concomitant]
     Dosage: 220 MG, UNK

REACTIONS (1)
  - Upper respiratory tract infection [Unknown]
